FAERS Safety Report 4947483-6 (Version None)
Quarter: 2006Q1

REPORT INFORMATION
  Report Type: 
  Country: None (occurrence: None)
  Receive Date: 20060320
  Receipt Date: 20060308
  Transmission Date: 20060701
  Serious: Yes (Disabling, Other)
  Sender: FDA-Public Use
  Company Number: US-JNJFOC-20060101437

PATIENT
  Sex: Female
  Weight: 68.95 kg

DRUGS (3)
  1. REMICADE [Suspect]
     Indication: ACCIDENTAL EXPOSURE
  2. LAMISIL [Concomitant]
  3. MINOCYCLINE HCL [Concomitant]

REACTIONS (6)
  - ACCIDENTAL EXPOSURE [None]
  - ASPERGILLOSIS [None]
  - DERMATITIS [None]
  - HEADACHE [None]
  - PARAESTHESIA [None]
  - SKIN NODULE [None]
